FAERS Safety Report 23358046 (Version 1)
Quarter: 2024Q1

REPORT INFORMATION
  Report Type: Spontaneous
  Country: US (occurrence: None)
  Receive Date: 20240101
  Receipt Date: 20240101
  Transmission Date: 20240410
  Serious: Yes (Other)
  Sender: FDA-Public Use
  Company Number: None

PATIENT
  Age: 86 Year
  Sex: Female
  Weight: 55.35 kg

DRUGS (8)
  1. ENTRESTO [Suspect]
     Active Substance: SACUBITRIL\VALSARTAN
     Indication: Cardiac failure
     Dosage: FREQUENCY : DAILY;?
     Route: 048
     Dates: start: 20220519, end: 20220628
  2. Apixaban 2.5 mg tablet [Concomitant]
     Dates: start: 20200917
  3. Calcium Carbonate 500 mg tablets [Concomitant]
     Dates: start: 20210304
  4. CARVEDILOL [Concomitant]
     Active Substance: CARVEDILOL
     Dates: start: 20210817
  5. DAPAGLIFLOZIN [Concomitant]
     Active Substance: DAPAGLIFLOZIN
     Dates: start: 20220613
  6. ROSUVASTATIN [Concomitant]
     Active Substance: ROSUVASTATIN
     Dates: start: 20200706
  7. Olopatadine 0.2% Opthalmic Solution [Concomitant]
     Dates: start: 20220612
  8. MONTELUKAST SODIUM [Concomitant]
     Active Substance: MONTELUKAST SODIUM
     Dates: start: 20210304

REACTIONS (3)
  - Eyelids pruritus [None]
  - Swelling of eyelid [None]
  - Hypersensitivity [None]

NARRATIVE: CASE EVENT DATE: 20220613
